FAERS Safety Report 8115777-1 (Version None)
Quarter: 2012Q1

REPORT INFORMATION
  Report Type: 
  Country: None (occurrence: None)
  Receive Date: 20120206
  Receipt Date: 20120126
  Transmission Date: 20120608
  Serious: Yes (Disabling)
  Sender: FDA-Public Use
  Company Number: GB-PERRIGO-11GB005587

PATIENT
  Age: 44 Year
  Sex: Female
  Weight: 65 kg

DRUGS (7)
  1. MINOXIDIL [Suspect]
     Indication: ALOPECIA
     Dosage: UNK
     Route: 061
     Dates: start: 20080601, end: 20101101
  2. CHONDROITIN [Concomitant]
     Indication: PRODUCT USED FOR UNKNOWN INDICATION
     Dosage: UNK
     Route: 065
  3. GLUCOSAMINE [Concomitant]
     Indication: PRODUCT USED FOR UNKNOWN INDICATION
     Dosage: UNK
     Route: 065
  4. DIAZEPAM [Concomitant]
     Indication: PRODUCT USED FOR UNKNOWN INDICATION
     Dosage: UNK
     Route: 065
  5. BETA BLOCKER [Concomitant]
     Indication: PRODUCT USED FOR UNKNOWN INDICATION
     Dosage: UNK
     Route: 065
  6. CITALOPRAM [Concomitant]
     Indication: DEPRESSION
     Dosage: UNK
     Route: 065
  7. MIRTAZAPINE [Concomitant]
     Indication: DEPRESSION
     Dosage: UNK
     Route: 065
     Dates: start: 20110101

REACTIONS (50)
  - TACHYCARDIA [None]
  - AMENORRHOEA [None]
  - HYPOTONIA [None]
  - RESTLESSNESS [None]
  - HYPERHIDROSIS [None]
  - OCULAR HYPERAEMIA [None]
  - ACROCHORDON [None]
  - ABDOMINAL PAIN [None]
  - BONE DISORDER [None]
  - CONTUSION [None]
  - FATIGUE [None]
  - HYPOAESTHESIA [None]
  - ACNE [None]
  - BLISTER [None]
  - ABDOMINAL DISTENSION [None]
  - DIARRHOEA [None]
  - PAIN [None]
  - WEIGHT INCREASED [None]
  - EPISTAXIS [None]
  - ANXIETY [None]
  - DEPRESSION [None]
  - INSOMNIA [None]
  - SKIN ODOUR ABNORMAL [None]
  - DISTURBANCE IN ATTENTION [None]
  - PARAESTHESIA [None]
  - VASODILATATION [None]
  - GINGIVAL BLEEDING [None]
  - MENORRHAGIA [None]
  - DEPRESSED MOOD [None]
  - NAUSEA [None]
  - TEMPERATURE INTOLERANCE [None]
  - HAEMORRHAGE [None]
  - HYPERTRICHOSIS [None]
  - COUGH [None]
  - GAIT DISTURBANCE [None]
  - HEART RATE IRREGULAR [None]
  - SCAR [None]
  - SKIN ULCER [None]
  - PIGMENTATION DISORDER [None]
  - JOINT CREPITATION [None]
  - ARTHROPATHY [None]
  - OEDEMA PERIPHERAL [None]
  - PALPITATIONS [None]
  - ARTHRALGIA [None]
  - CONVULSION [None]
  - SKIN DISCOLOURATION [None]
  - VISUAL ACUITY REDUCED [None]
  - BONE PAIN [None]
  - RHINORRHOEA [None]
  - SKIN SWELLING [None]
